FAERS Safety Report 9486475 (Version 1)
Quarter: 2013Q3

REPORT INFORMATION
  Report Type: Spontaneous
  Country: US (occurrence: None)
  Receive Date: 20130827
  Receipt Date: 20130827
  Transmission Date: 20140515
  Serious: Yes (Life-Threatening, Disabling, Other)
  Sender: FDA-Public Use
  Company Number: None

PATIENT
  Age: 25 Year
  Sex: Female
  Weight: 56.7 kg

DRUGS (1)
  1. LARIAM MEFLOQUIN [Suspect]
     Indication: MALARIA PROPHYLAXIS
     Dosage: 1 PILL WEEKLY -- TAKEN BY MOUTH
     Route: 048

REACTIONS (26)
  - Nightmare [None]
  - Hallucinations, mixed [None]
  - Major depression [None]
  - Anxiety [None]
  - Panic attack [None]
  - Suicidal ideation [None]
  - Cardiac disorder [None]
  - Impulsive behaviour [None]
  - Amnesia [None]
  - Psychotic disorder [None]
  - Post-traumatic stress disorder [None]
  - Cognitive disorder [None]
  - Impaired work ability [None]
  - Disturbance in attention [None]
  - Disturbance in attention [None]
  - Vision blurred [None]
  - Migraine [None]
  - Motion sickness [None]
  - Photophobia [None]
  - Hyperacusis [None]
  - Aphasia [None]
  - Thinking abnormal [None]
  - Anger [None]
  - Anger [None]
  - Irritability [None]
  - Quality of life decreased [None]
